FAERS Safety Report 14417156 (Version 3)
Quarter: 2018Q4

REPORT INFORMATION
  Report Type: Spontaneous
  Country: US (occurrence: US)
  Receive Date: 20180122
  Receipt Date: 20181201
  Transmission Date: 20190204
  Serious: No
  Sender: FDA-Public Use
  Company Number: US-PFIZER INC-2018026824

PATIENT
  Age: 67 Year
  Sex: Female

DRUGS (1)
  1. GENOTROPIN MQ [Suspect]
     Active Substance: SOMATROPIN
     Indication: GROWTH HORMONE DEFICIENCY
     Dosage: 0.4 MG, CYCLIC (FIVE DAYS EACH WEEK; DO NOT SKIP CONSECUTIVE DAYS)
     Route: 058
     Dates: start: 20120618

REACTIONS (11)
  - Condition aggravated [Unknown]
  - Product use issue [Unknown]
  - Blood thyroid stimulating hormone decreased [Recovering/Resolving]
  - Blood creatinine increased [Unknown]
  - Human epidermal growth factor receptor decreased [Unknown]
  - Blood sodium increased [Not Recovered/Not Resolved]
  - Malaise [Unknown]
  - Balance disorder [Unknown]
  - Insulin-like growth factor decreased [Unknown]
  - Product dose omission [Unknown]
  - Blood prolactin increased [Unknown]

NARRATIVE: CASE EVENT DATE: 20120618
